FAERS Safety Report 9618041 (Version 1)
Quarter: 2013Q4

REPORT INFORMATION
  Report Type: Spontaneous
  Country: GB (occurrence: GB)
  Receive Date: 20131012
  Receipt Date: 20131012
  Transmission Date: 20140711
  Serious: Yes (Life-Threatening, Hospitalization)
  Sender: FDA-Public Use
  Company Number: GB-JNJFOC-20131004098

PATIENT
  Age: 82 Year
  Sex: Female

DRUGS (3)
  1. PARACETAMOL [Suspect]
     Route: 048
  2. PARACETAMOL [Suspect]
     Indication: ARTHRALGIA
     Dosage: FREQUENCY: AS NECESSARY
     Route: 048
     Dates: start: 2012, end: 20130920
  3. LISINOPRIL [Suspect]
     Indication: HYPERTENSION
     Route: 048
     Dates: start: 20050518, end: 20130920

REACTIONS (2)
  - Angioedema [Recovering/Resolving]
  - Swollen tongue [Recovering/Resolving]
